FAERS Safety Report 17171260 (Version 1)
Quarter: 2019Q4

REPORT INFORMATION
  Report Type: Spontaneous
  Country: US (occurrence: US)
  Receive Date: 20191218
  Receipt Date: 20191218
  Transmission Date: 20200122
  Serious: No
  Sender: FDA-Public Use
  Company Number: US-SUPERNUS PHARMACEUTICALS, INC.-2019SUP00315

PATIENT
  Age: 36 Year
  Sex: Female

DRUGS (9)
  1. OMEPRAZOLE. [Concomitant]
     Active Substance: OMEPRAZOLE
  2. PAROXETINE. [Concomitant]
     Active Substance: PAROXETINE
  3. PRAVASTATIN. [Concomitant]
     Active Substance: PRAVASTATIN
  4. RANITIDINE. [Concomitant]
     Active Substance: RANITIDINE
  5. AMITRIPTYLINE [Concomitant]
     Active Substance: AMITRIPTYLINE
  6. LISINOPRIL AND HYDROCHLOROTHIAZIDE [Concomitant]
     Active Substance: HYDROCHLOROTHIAZIDE\LISINOPRIL
  7. FERROUS SULFATE. [Concomitant]
     Active Substance: FERROUS SULFATE
  8. TROKENDI XR [Suspect]
     Active Substance: TOPIRAMATE
     Indication: MIGRAINE PROPHYLAXIS
     Dosage: 200 MG, ONCE AT 1 PM
     Route: 048
     Dates: start: 20190506
  9. VITAMIN D2 [Concomitant]
     Active Substance: ERGOCALCIFEROL
     Dosage: 50000 IU

REACTIONS (6)
  - Feeling abnormal [Recovering/Resolving]
  - Accidental overdose [Recovering/Resolving]
  - Product dispensing error [Recovering/Resolving]
  - Hypoaesthesia [Recovering/Resolving]
  - Feeling drunk [Recovering/Resolving]
  - Amnesia [Recovering/Resolving]

NARRATIVE: CASE EVENT DATE: 20190506
